FAERS Safety Report 6121986-3 (Version None)
Quarter: 2009Q1

REPORT INFORMATION
  Report Type: 
  Country: None (occurrence: None)
  Receive Date: 20090316
  Receipt Date: 20090306
  Transmission Date: 20090719
  Serious: Yes (Hospitalization)
  Sender: FDA-Public Use
  Company Number: KV200900287

PATIENT
  Age: 60 Year
  Sex: Male

DRUGS (3)
  1. MORPHINE SULFATE [Suspect]
     Indication: BACK PAIN
     Dosage: 60 MG, TID, ORAL
     Route: 048
  2. HYDROCHLOROTHIAZIDE [Concomitant]
  3. NORTRIPTYLINE HCL [Concomitant]

REACTIONS (3)
  - DIABETES MELLITUS [None]
  - LOSS OF CONSCIOUSNESS [None]
  - RENAL IMPAIRMENT [None]
